FAERS Safety Report 9198581 (Version 1)
Quarter: 2013Q1

REPORT INFORMATION
  Report Type: Spontaneous
  Country: US (occurrence: None)
  Receive Date: 20130327
  Receipt Date: 20130327
  Transmission Date: 20140127
  Serious: Yes (Hospitalization, Disabling)
  Sender: FDA-Public Use
  Company Number: None

PATIENT
  Age: 95 Year
  Sex: Female
  Weight: 56 kg

DRUGS (9)
  1. WARFARIN [Suspect]
     Indication: DEEP VEIN THROMBOSIS
     Route: 048
  2. ACETAMINOPHEN [Concomitant]
  3. BISACODYL [Concomitant]
  4. DOCUSATE/SENNA [Concomitant]
  5. FUROSEMIDE [Concomitant]
  6. GUAIFENESIN LA [Concomitant]
  7. LEVOTHYROXINE [Concomitant]
  8. NITROGLYCERIN [Concomitant]
  9. POLYETHYLENE GLYCOL [Concomitant]

REACTIONS (14)
  - Local swelling [None]
  - Pain [None]
  - Delirium [None]
  - Urinary tract infection [None]
  - Breast pain [None]
  - Musculoskeletal pain [None]
  - Abdominal pain [None]
  - International normalised ratio increased [None]
  - Mental status changes [None]
  - Subdural haematoma [None]
  - Intracranial pressure increased [None]
  - Brain midline shift [None]
  - Subarachnoid haemorrhage [None]
  - Brain oedema [None]
